FAERS Safety Report 9251165 (Version 2)
Quarter: 2014Q1

REPORT INFORMATION
  Report Type: Spontaneous
  Country: US (occurrence: US)
  Receive Date: 20130424
  Receipt Date: 20140114
  Transmission Date: 20141002
  Serious: Yes (Hospitalization)
  Sender: FDA-Public Use
  Company Number: US-ASTRAZENECA-2013SE27424

PATIENT
  Age: 760 Month
  Sex: Female
  Weight: 59 kg

DRUGS (14)
  1. NEXIUM [Suspect]
     Indication: GASTROOESOPHAGEAL REFLUX DISEASE
     Route: 048
     Dates: start: 2004, end: 2009
  2. PROTONIX [Concomitant]
     Indication: GASTROOESOPHAGEAL REFLUX DISEASE
     Dates: start: 2004, end: 2008
  3. ZEGERID [Concomitant]
     Indication: GASTROOESOPHAGEAL REFLUX DISEASE
     Dates: start: 2008, end: 2010
  4. TUMS [Concomitant]
     Indication: ABDOMINAL DISCOMFORT
     Dates: start: 1990, end: 2000
  5. ALKA SELTZER [Concomitant]
     Indication: DYSPEPSIA
     Dates: start: 1990, end: 2000
  6. PEPTO BISMOL [Concomitant]
     Indication: DYSPEPSIA
     Dosage: TABLESPOON AS NEEDED
     Dates: start: 1990, end: 2000
  7. PRIMIDONE [Concomitant]
     Indication: TREMOR
     Dates: start: 2009
  8. ATORVASTATIN [Concomitant]
     Indication: BLOOD CHOLESTEROL INCREASED
     Dates: start: 2011
  9. MYRBETRIG [Concomitant]
     Indication: BLADDER DISORDER
     Dates: start: 2012
  10. TRAZADONE [Concomitant]
     Indication: SLEEP DISORDER
  11. AMBIEN [Concomitant]
     Indication: SLEEP DISORDER
     Dates: start: 2010
  12. ZANTAC [Concomitant]
  13. ASPIRIN [Concomitant]
     Indication: HEADACHE
  14. PROZAC [Concomitant]

REACTIONS (12)
  - Fall [Unknown]
  - Mobility decreased [Unknown]
  - Depression [Unknown]
  - Osteoporosis [Unknown]
  - Wrist fracture [Unknown]
  - Radius fracture [Unknown]
  - Bone disorder [Unknown]
  - Stress [Unknown]
  - Fear of falling [Unknown]
  - Calcium deficiency [Unknown]
  - Vitamin D deficiency [Unknown]
  - Ulna fracture [Unknown]
